FAERS Safety Report 20833500 (Version 1)
Quarter: 2022Q2

REPORT INFORMATION
  Report Type: 
  Country: None (occurrence: None)
  Receive Date: 20220516
  Receipt Date: 20220516
  Transmission Date: 20220721
  Serious: No
  Sender: FDA-Public Use
  Company Number: NL-ROCHE-3082439

PATIENT

DRUGS (2)
  1. OBINUTUZUMAB [Suspect]
     Active Substance: OBINUTUZUMAB
     Dosage: 13/DEC/2021: DATE OF LAST DOSE OF OBINUTUZUMAB PRIOR TO SAE.
     Dates: start: 20210719, end: 20211213
  2. VENETOCLAX [Suspect]
     Active Substance: VENETOCLAX
     Dosage: 12/APR/2022:DATE OF LAST DOSE OF VENETOCLAX PRIOR TO SAE.
     Dates: start: 20210816, end: 20220414

REACTIONS (2)
  - COVID-19 [None]
  - Pneumonia [None]

NARRATIVE: CASE EVENT DATE: 20220412
